FAERS Safety Report 4696174-8 (Version None)
Quarter: 2005Q2

REPORT INFORMATION
  Report Type: 
  Country: None (occurrence: None)
  Receive Date: 20050621
  Receipt Date: 20050610
  Transmission Date: 20051028
  Serious: Yes (Hospitalization)
  Sender: FDA-Public Use
  Company Number: JP-JNJFOC-20050306637

PATIENT
  Sex: Male
  Weight: 56 kg

DRUGS (13)
  1. REMICADE [Suspect]
     Route: 042
  2. REMICADE [Suspect]
     Route: 042
  3. REMICADE [Suspect]
     Indication: RHEUMATOID ARTHRITIS
     Route: 042
  4. METHOTREXATE [Suspect]
     Route: 049
  5. METHOTREXATE [Suspect]
     Route: 049
  6. METHOTREXATE [Suspect]
     Route: 049
  7. PREDONINE [Concomitant]
     Route: 049
  8. MOBIC [Concomitant]
     Route: 049
  9. RIMATIL [Concomitant]
     Route: 049
  10. CYTOTEC [Concomitant]
     Route: 049
  11. JUVELA N [Concomitant]
     Route: 049
  12. DIFLUCAN [Concomitant]
     Route: 049
  13. PYDOXAL [Concomitant]
     Route: 049

REACTIONS (3)
  - COUGH [None]
  - NASOPHARYNGITIS [None]
  - PNEUMONITIS CRYPTOCOCCAL [None]
